FAERS Safety Report 17126173 (Version 1)
Quarter: 2019Q4

REPORT INFORMATION
  Report Type: Spontaneous
  Country: US (occurrence: US)
  Receive Date: 20191209
  Receipt Date: 20191209
  Transmission Date: 20200122
  Serious: Yes (Hospitalization)
  Sender: FDA-Public Use
  Company Number: US-CIPLA LTD.-2019US07939

PATIENT

DRUGS (3)
  1. TROSPIUM CHLORIDE. [Suspect]
     Active Substance: TROSPIUM CHLORIDE
     Indication: NEURALGIA
     Dosage: 20 MILLIGRAM
     Route: 048
     Dates: start: 2004
  2. TOPIRAMATE. [Suspect]
     Active Substance: TOPIRAMATE
     Indication: PRODUCT USED FOR UNKNOWN INDICATION
     Dosage: UNK
     Route: 065
  3. TROSPIUM CHLORIDE. [Suspect]
     Active Substance: TROSPIUM CHLORIDE
     Dosage: UNK, RESTARTED
     Route: 048

REACTIONS (4)
  - Neck injury [Unknown]
  - Urinary incontinence [Unknown]
  - Off label use [Unknown]
  - Drug ineffective for unapproved indication [Unknown]
